FAERS Safety Report 5189929-7 (Version None)
Quarter: 2006Q4

REPORT INFORMATION
  Report Type: 
  Country: None (occurrence: None)
  Receive Date: 20061215
  Receipt Date: 20061204
  Transmission Date: 20070319
  Serious: Yes (Hospitalization)
  Sender: FDA-Public Use
  Company Number: 2006150534

PATIENT
  Age: 1 Day
  Sex: Male
  Weight: 1.3 kg

DRUGS (6)
  1. DOXORUBICIN HYDROCHLORIDE [Suspect]
     Indication: ACUTE LYMPHOCYTIC LEUKAEMIA
     Dosage: 26 MG, PLACENTAL
     Route: 050
     Dates: start: 19950418, end: 19950824
  2. CYTARABINE [Suspect]
     Indication: ACUTE LYMPHOCYTIC LEUKAEMIA
     Dosage: 40 MG, PLACENTAL
     Route: 050
     Dates: start: 19950113, end: 19950313
  3. VINCRISTINE [Suspect]
     Indication: ACUTE LYMPHOCYTIC LEUKAEMIA
     Dosage: 1.5 GRAM PLACENTAL
     Route: 050
     Dates: start: 19950113, end: 19960713
  4. IDARUBICIN HCL [Suspect]
     Indication: ACUTE LYMPHOCYTIC LEUKAEMIA
     Dosage: 6.5 MG, PLACENTAL
     Route: 050
     Dates: start: 19950113, end: 19950313
  5. ASPARAGINASE (ASPARAGINASE) [Suspect]
     Indication: ACUTE LYMPHOCYTIC LEUKAEMIA
     Dosage: 6500 I.U., PLACENTAL
     Route: 050
     Dates: start: 19950415, end: 19950824
  6. VINDESINE (VINDESINE) [Suspect]
     Indication: ACUTE LYMPHOCYTIC LEUKAEMIA
     Dosage: 3.4 MG, PLACENTAL
     Route: 050
     Dates: start: 19950418, end: 19950824

REACTIONS (6)
  - CAESAREAN SECTION [None]
  - DRUG EXPOSURE BEFORE PREGNANCY [None]
  - FOETAL DISTRESS SYNDROME [None]
  - FOETAL GROWTH RETARDATION [None]
  - GROWTH RETARDATION [None]
  - PREMATURE BABY [None]
